FAERS Safety Report 5880372-1 (Version None)
Quarter: 2008Q3

REPORT INFORMATION
  Report Type: 
  Country: None (occurrence: None)
  Receive Date: 20080912
  Receipt Date: 20080729
  Transmission Date: 20090109
  Serious: No
  Sender: FDA-Public Use
  Company Number: US-ABBOTT-07P-163-0421440-00

PATIENT
  Sex: Female
  Weight: 81.72 kg

DRUGS (14)
  1. HUMIRA [Suspect]
     Indication: PSORIATIC ARTHROPATHY
     Dates: end: 20070801
  2. HUMIRA [Suspect]
     Indication: PSORIASIS
     Route: 050
     Dates: start: 20070401
  3. METHOTREXATE [Concomitant]
     Indication: PSORIASIS
     Route: 048
     Dates: start: 20070401
  4. METHOTREXATE [Concomitant]
     Indication: PSORIATIC ARTHROPATHY
  5. FOLIC ACID [Concomitant]
     Indication: VITAMIN SUPPLEMENTATION
     Route: 048
     Dates: start: 20070401
  6. AMITRIPTYLINE HCL [Concomitant]
     Indication: PAIN
     Dosage: 1-2 TABS EVERY NIGHT
     Route: 048
     Dates: start: 20060101
  7. AMITRIPTYLINE HCL [Concomitant]
     Indication: INSOMNIA
  8. DULOXETINE HYDROCHLORIDE [Concomitant]
     Indication: DEPRESSION
     Route: 048
     Dates: start: 20070801
  9. DULOXETINE HYDROCHLORIDE [Concomitant]
     Indication: ANXIETY
  10. ALPRAZOLAM [Concomitant]
     Indication: ANXIETY
     Dosage: AS NEEDED
     Route: 048
  11. ALPRAZOLAM [Concomitant]
     Indication: STRESS
  12. STEROID CREAM [Concomitant]
     Indication: PSORIASIS
     Dosage: QD AND AS NEEDED
     Route: 061
     Dates: start: 19980101
  13. ESCITALOPRAM OXALATE [Concomitant]
     Indication: DEPRESSION
     Route: 048
     Dates: start: 20000101
  14. ESTROGENS CONJUGATED [Concomitant]
     Indication: HYSTERECTOMY
     Route: 048
     Dates: start: 20030101

REACTIONS (10)
  - ARTHRALGIA [None]
  - FALL [None]
  - FUNGAL INFECTION [None]
  - INJECTION SITE HAEMATOMA [None]
  - INJURY [None]
  - PRURITUS [None]
  - SINUSITIS [None]
  - SKIN EXFOLIATION [None]
  - THYROID DISORDER [None]
  - UNDERDOSE [None]
